FAERS Safety Report 7491474 (Version 6)
Quarter: 2012Q4

REPORT INFORMATION
  Report Type: 
  Country: TW (occurrence: TW)
  Receive Date: 20100721
  Receipt Date: 20121203
  Transmission Date: 20130627
  Serious: Yes (Hospitalization)
  Sender: FDA-Public Use
  Company Number: PHHO2010TW10616

PATIENT
  Age: 41 Year
  Sex: Male
  Weight: 73 kg

DRUGS (7)
  1. PLACEBO [Suspect]
     Indication: PANCREATIC NEUROENDOCRINE TUMOUR
     Dosage: UNK
     Route: 048
     Dates: start: 20090316, end: 20100613
  2. RAD001 [Suspect]
     Indication: PANCREATIC NEUROENDOCRINE TUMOUR
     Dosage: 10 mg, UNK
     Route: 048
     Dates: start: 20100614, end: 20100703
  3. RAD001 [Suspect]
     Dosage: 5 mg, UNK
     Route: 048
     Dates: start: 20100704, end: 20100704
  4. SULPIRIDE [Concomitant]
  5. BROMAZEPAM [Concomitant]
  6. AMILORIDE W/HYDROCHLOROTHIAZIDE [Concomitant]
  7. BISOPROLOL HEMIFUMARATE [Concomitant]

REACTIONS (13)
  - Hepatic encephalopathy [Recovered/Resolved]
  - Pneumonia [Recovered/Resolved]
  - Altered state of consciousness [Recovered/Resolved]
  - Nervous system disorder [Recovered/Resolved]
  - Atrophy [Recovered/Resolved]
  - Agitation [Recovered/Resolved]
  - Fall [Recovered/Resolved]
  - Ammonia increased [Not Recovered/Not Resolved]
  - Blood bilirubin increased [Recovered/Resolved]
  - Pyrexia [Recovered/Resolved]
  - Lung infiltration [Recovered/Resolved]
  - Tremor [Recovered/Resolved]
  - Concomitant disease progression [Recovered/Resolved]
